FAERS Safety Report 15541126 (Version 1)
Quarter: 2018Q4

REPORT INFORMATION
  Report Type: Spontaneous
  Country: DE (occurrence: DE)
  Receive Date: 20181023
  Receipt Date: 20181023
  Transmission Date: 20190205
  Serious: Yes (Hospitalization, Other)
  Sender: FDA-Public Use
  Company Number: DE-009507513-1810DEU007440

PATIENT
  Age: 32 Year
  Sex: Female

DRUGS (4)
  1. OVITRELLE [Suspect]
     Active Substance: CHORIOGONADOTROPIN ALFA
     Indication: MANAGEMENT OF REPRODUCTION
     Dosage: UNK
  2. GONAL-F [Suspect]
     Active Substance: FOLLITROPIN
     Indication: MANAGEMENT OF REPRODUCTION
     Dosage: UNK
  3. ORGALUTRAN [Suspect]
     Active Substance: GANIRELIX ACETATE
     Indication: MANAGEMENT OF REPRODUCTION
     Dosage: UNK
  4. UTROGEST [Suspect]
     Active Substance: PROGESTERONE
     Indication: MANAGEMENT OF REPRODUCTION
     Dosage: UNK

REACTIONS (5)
  - Ovarian hyperstimulation syndrome [Not Recovered/Not Resolved]
  - Ovarian cyst [Not Recovered/Not Resolved]
  - Pleural effusion [Not Recovered/Not Resolved]
  - Ascites [Not Recovered/Not Resolved]
  - Dyspnoea [Not Recovered/Not Resolved]

NARRATIVE: CASE EVENT DATE: 20181002
